FAERS Safety Report 8119805-9 (Version None)
Quarter: 2012Q1

REPORT INFORMATION
  Report Type: 
  Country: None (occurrence: None)
  Receive Date: 20120203
  Receipt Date: 20120118
  Transmission Date: 20120608
  Serious: Yes (Other)
  Sender: FDA-Public Use
  Company Number: JPI-P-016869

PATIENT
  Age: 38 Year
  Sex: Male
  Weight: 97.5234 kg

DRUGS (6)
  1. LISINOPRIL [Concomitant]
  2. ATORVASTATIN CALCIUM [Suspect]
     Indication: BLOOD CHOLESTEROL INCREASED
     Dosage: (UNKNOWN), (UNKNOWN)
     Dates: start: 20100101, end: 20110826
  3. PAROXETINE [Concomitant]
  4. XYREM [Suspect]
     Indication: CATAPLEXY
     Dosage: (UNKNOWN), ORAL, 7.5 GM (3.75 GM, 2 IN 1 D), ORAL, 7.5 GM (3.75 GM, 2 IN 1 D), ORAL
     Route: 048
     Dates: end: 20111101
  5. XYREM [Suspect]
     Indication: CATAPLEXY
     Dosage: (UNKNOWN), ORAL, 7.5 GM (3.75 GM, 2 IN 1 D), ORAL, 7.5 GM (3.75 GM, 2 IN 1 D), ORAL
     Route: 048
     Dates: start: 20050915
  6. TOPIRAMATE [Concomitant]

REACTIONS (13)
  - BENIGN GASTRIC NEOPLASM [None]
  - WEIGHT DECREASED [None]
  - LIVER INJURY [None]
  - BENIGN COLONIC NEOPLASM [None]
  - AMMONIA INCREASED [None]
  - VOMITING [None]
  - BENIGN SMALL INTESTINAL NEOPLASM [None]
  - HAEMATOCHEZIA [None]
  - BLOOD CHOLESTEROL INCREASED [None]
  - HEPATIC ENZYME INCREASED [None]
  - HAEMORRHAGE [None]
  - HIATUS HERNIA [None]
  - PAIN [None]
